FAERS Safety Report 5154005-6 (Version None)
Quarter: 2006Q4

REPORT INFORMATION
  Report Type: 
  Country: None (occurrence: None)
  Receive Date: 20061120
  Receipt Date: 20060927
  Transmission Date: 20070319
  Serious: Yes (Hospitalization)
  Sender: FDA-Public Use
  Company Number: FR-GLAXOSMITHKLINE-B0440425A

PATIENT
  Age: 49 Year
  Sex: Male
  Weight: 84 kg

DRUGS (2)
  1. ZYBAN [Suspect]
     Route: 048
     Dates: start: 20010924, end: 20011224
  2. KENACORT [Concomitant]
     Indication: ASTHMA

REACTIONS (8)
  - ASTHENIA [None]
  - COMA [None]
  - DRY MOUTH [None]
  - ELECTROCARDIOGRAM REPOLARISATION ABNORMALITY [None]
  - GAIT DISTURBANCE [None]
  - MALAISE [None]
  - OSTEOARTHRITIS [None]
  - OSTEONECROSIS [None]
